FAERS Safety Report 25941018 (Version 1)
Quarter: 2025Q4

REPORT INFORMATION
  Report Type: Spontaneous
  Country: US (occurrence: US)
  Receive Date: 20251020
  Receipt Date: 20251020
  Transmission Date: 20260117
  Serious: No
  Sender: GALDERMA
  Company Number: US-GALDERMA-US2025019175

PATIENT

DRUGS (1)
  1. NEMLUVIO [Suspect]
     Active Substance: NEMOLIZUMAB-ILTO
     Indication: Dermatitis atopic
     Dosage: UNK,LOADING DOSE
     Route: 058

REACTIONS (2)
  - Nausea [Recovering/Resolving]
  - Abdominal discomfort [Recovering/Resolving]
